FAERS Safety Report 14757049 (Version 1)
Quarter: 2018Q2

REPORT INFORMATION
  Report Type: Report from Study
  Country: GB (occurrence: DE)
  Receive Date: 20180413
  Receipt Date: 20180413
  Transmission Date: 20180711
  Serious: Yes (Hospitalization, Other)
  Sender: FDA-Public Use
  Company Number: GB-BAYER-RCH-99410

PATIENT
  Age: 73 Year
  Sex: Female
  Weight: 70 kg

DRUGS (7)
  1. SPIRO COMP. [Suspect]
     Active Substance: FUROSEMIDE\SPIRONOLACTONE
     Indication: OEDEMA
     Route: 048
  2. VERAPAMIL [Concomitant]
     Active Substance: VERAPAMIL HYDROCHLORIDE
     Indication: ATRIAL FIBRILLATION
     Route: 048
  3. ASPIRIN 100 MG [Suspect]
     Active Substance: ASPIRIN
     Indication: THROMBOSIS PROPHYLAXIS
     Route: 048
  4. EUPHYLLINE [AMINOPHYLLINE] [Concomitant]
     Indication: NASOPHARYNGITIS
     Route: 048
  5. BACTRIM [Suspect]
     Active Substance: SULFAMETHOXAZOLE\TRIMETHOPRIM
     Indication: LARYNGITIS
     Route: 048
     Dates: start: 19960318, end: 19960318
  6. SANASTHMAX [Concomitant]
     Indication: NASOPHARYNGITIS
     Dosage: 1 DF, UNK
     Route: 055
  7. DIGITOXIN [Concomitant]
     Active Substance: DIGITOXIN
     Indication: CARDIAC DISORDER
     Route: 048

REACTIONS (5)
  - Dermatitis bullous [Recovering/Resolving]
  - Mucosal erosion [Recovering/Resolving]
  - Gamma-glutamyltransferase increased [Unknown]
  - Pyrexia [Recovering/Resolving]
  - Rash [Recovering/Resolving]

NARRATIVE: CASE EVENT DATE: 19960318
